FAERS Safety Report 8600383-2 (Version None)
Quarter: 2012Q3

REPORT INFORMATION
  Report Type: 
  Country: None (occurrence: None)
  Receive Date: 20120817
  Receipt Date: 20120813
  Transmission Date: 20120928
  Serious: No
  Sender: FDA-Public Use
  Company Number: US-PFIZER INC-2012198193

PATIENT
  Age: 49 Year
  Sex: Female
  Weight: 58.05 kg

DRUGS (8)
  1. CELEBREX [Suspect]
     Indication: PAIN
     Dosage: 200 MG, DAILY
     Route: 048
     Dates: start: 20011101
  2. BACLOFEN [Concomitant]
     Indication: PAIN
     Dosage: 30 MG, DAILY
  3. CELEBREX [Suspect]
     Indication: SWELLING
     Dosage: 200 MG, 2X/DAY
     Route: 048
  4. CYMBALTA [Suspect]
     Indication: PAIN
     Dosage: 30 MG, DAILY
     Dates: start: 20120101
  5. LISINOPRIL [Concomitant]
     Indication: HYPERTENSION
     Dosage: 20 MG, DAILY
  6. NEURONTIN [Concomitant]
     Indication: PAIN
     Dosage: 2400MG-2700MG,DAILY
  7. OXYCODONE [Concomitant]
     Indication: PAIN
     Dosage: UNK, 4X/DAY
  8. CELEBREX [Suspect]
     Indication: ARTHRITIS

REACTIONS (8)
  - WEIGHT INCREASED [None]
  - DYSPNOEA [None]
  - MUSCLE DISORDER [None]
  - JOINT SWELLING [None]
  - MALAISE [None]
  - BONE DISORDER [None]
  - CARDIAC DISORDER [None]
  - PAIN [None]
